FAERS Safety Report 8335882-4 (Version None)
Quarter: 2012Q2

REPORT INFORMATION
  Report Type: 
  Country: None (occurrence: None)
  Receive Date: 20120501
  Receipt Date: 20120501
  Transmission Date: 20120825
  Serious: Yes (Hospitalization)
  Sender: FDA-Public Use
  Company Number: None

PATIENT
  Age: 59 Year
  Sex: Male

DRUGS (3)
  1. LISINOPRIL [Suspect]
     Indication: HYPERTENSION
     Dosage: MG EVERY DAY PO
     Route: 048
     Dates: start: 20080118, end: 20120314
  2. NAPROXEN [Suspect]
     Indication: OSTEOARTHRITIS
     Dosage: MG BID PO
     Route: 048
     Dates: start: 20090723, end: 20120314
  3. NAPROXEN [Suspect]
     Indication: PAIN
     Dosage: MG BID PO
     Route: 048
     Dates: start: 20090723, end: 20120314

REACTIONS (5)
  - ELECTROCARDIOGRAM T WAVE PEAKED [None]
  - HYPERKALAEMIA [None]
  - BLOOD CREATININE INCREASED [None]
  - HEART RATE DECREASED [None]
  - BLOOD UREA INCREASED [None]
